FAERS Safety Report 7955211-5 (Version None)
Quarter: 2011Q4

REPORT INFORMATION
  Report Type: 
  Country: None (occurrence: None)
  Receive Date: 20111202
  Receipt Date: 20111130
  Transmission Date: 20120403
  Serious: Yes (Hospitalization)
  Sender: FDA-Public Use
  Company Number: PHHY2011CN93265

PATIENT
  Age: 44 Year
  Sex: Male

DRUGS (1)
  1. SEBIVO [Suspect]
     Dates: start: 20101101

REACTIONS (6)
  - ABDOMINAL PAIN UPPER [None]
  - MUSCLE DISORDER [None]
  - BLOOD LACTIC ACID INCREASED [None]
  - BLOOD CREATINE PHOSPHOKINASE INCREASED [None]
  - GASTRITIS [None]
  - MYOGLOBIN BLOOD INCREASED [None]
